FAERS Safety Report 9716537 (Version 1)
Quarter: 2013Q4

REPORT INFORMATION
  Report Type: Spontaneous
  Country: US (occurrence: US)
  Receive Date: 20131127
  Receipt Date: 20131127
  Transmission Date: 20140711
  Serious: No
  Sender: FDA-Public Use
  Company Number: US-PFIZER INC-2013334710

PATIENT
  Sex: Female

DRUGS (3)
  1. TOVIAZ [Suspect]
     Dosage: 4 MG, UNK
  2. TOVIAZ [Suspect]
     Dosage: 8 MG, UNK
  3. CELEBREX [Concomitant]
     Dosage: UNK

REACTIONS (2)
  - Rash [Unknown]
  - Reaction to drug excipients [Unknown]
